FAERS Safety Report 7185115-X (Version None)
Quarter: 2010Q4

REPORT INFORMATION
  Report Type: 
  Country: None (occurrence: None)
  Receive Date: 20101222
  Receipt Date: 20100528
  Transmission Date: 20110411
  Serious: No
  Sender: FDA-Public Use
  Company Number: US-AMGEN-TCS415277

PATIENT

DRUGS (4)
  1. ENBREL [Suspect]
     Indication: RHEUMATOID ARTHRITIS
     Dosage: 50 MG, QWK
     Route: 058
     Dates: start: 20100512
  2. METHOTREXATE [Concomitant]
     Dosage: 12.5 MG, QWK
  3. SULFASALAZINE [Concomitant]
     Dosage: UNK UNK, UNK
  4. HYDROXYCHLOROQUINE SULFATE [Concomitant]
     Dosage: 200 MG, BID

REACTIONS (1)
  - BRONCHITIS [None]
